FAERS Safety Report 18706390 (Version 1)
Quarter: 2021Q1

REPORT INFORMATION
  Report Type: Spontaneous
  Country: US (occurrence: US)
  Receive Date: 20210105
  Receipt Date: 20210105
  Transmission Date: 20210419
  Serious: No
  Sender: FDA-Public Use
  Company Number: None

PATIENT
  Age: 69 Year
  Sex: Female
  Weight: 68.04 kg

DRUGS (1)
  1. OTEZLA [Suspect]
     Active Substance: APREMILAST
     Indication: PSORIATIC ARTHROPATHY
     Dosage: TAKE 1 TABLET BY MOUTH TWICE DAILY ALTERNATING WITH ONCE A DAY AS DIRECTED.
     Route: 048
     Dates: start: 201909

REACTIONS (2)
  - Hospitalisation [None]
  - Therapy interrupted [None]
